FAERS Safety Report 7644208-0 (Version None)
Quarter: 2011Q3

REPORT INFORMATION
  Report Type: 
  Country: None (occurrence: None)
  Receive Date: 20110729
  Receipt Date: 20110715
  Transmission Date: 20111222
  Serious: Yes (Hospitalization)
  Sender: FDA-Public Use
  Company Number: US-BAYER-2011-063321

PATIENT
  Age: 75 Year
  Sex: Female

DRUGS (5)
  1. LOPRESSOR [Concomitant]
  2. ACETYLSALICYLIC ACID SRT [Suspect]
     Dosage: DAILY DOSE 81 MG
  3. HMG COA REDUCTASE INHIBITORS [Concomitant]
  4. PLAVIX [Suspect]
     Indication: CORONARY ARTERY BYPASS
     Dosage: DAILY DOSE 75 MG
     Route: 048
  5. LISINOPRIL [Concomitant]

REACTIONS (4)
  - PALLOR [None]
  - GASTRIC ULCER HAEMORRHAGE [None]
  - FATIGUE [None]
  - HAEMOGLOBIN DECREASED [None]
